FAERS Safety Report 24370665 (Version 1)
Quarter: 2024Q3

REPORT INFORMATION
  Report Type: Spontaneous
  Country: US (occurrence: US)
  Receive Date: 20240927
  Receipt Date: 20240927
  Transmission Date: 20241016
  Serious: No
  Sender: RECKITT BENCKISER
  Company Number: US-INDIVIOR US-INDV-141184-2023

PATIENT
  Sex: Female

DRUGS (2)
  1. PERSERIS [Suspect]
     Active Substance: RISPERIDONE
     Indication: Product used for unknown indication
     Dosage: 120 MILLIGRAM, QMO
     Route: 058
  2. PERSERIS [Suspect]
     Active Substance: RISPERIDONE

REACTIONS (1)
  - Therapeutic response shortened [Unknown]
